FAERS Safety Report 15864798 (Version 3)
Quarter: 2019Q3

REPORT INFORMATION
  Report Type: Spontaneous
  Country: US (occurrence: US)
  Receive Date: 20190124
  Receipt Date: 20190802
  Transmission Date: 20191004
  Serious: Yes (Hospitalization)
  Sender: FDA-Public Use
  Company Number: US-ENDO PHARMACEUTICALS INC-2018-042558

PATIENT
  Age: 61 Year
  Sex: Male
  Weight: 92.97 kg

DRUGS (12)
  1. NEXIUM [Concomitant]
     Active Substance: ESOMEPRAZOLE MAGNESIUM
     Indication: PRODUCT USED FOR UNKNOWN INDICATION
     Dosage: 40 MG, DAILY
     Route: 048
     Dates: start: 20140916
  2. ZOLOFT [Concomitant]
     Active Substance: SERTRALINE HYDROCHLORIDE
     Indication: PRODUCT USED FOR UNKNOWN INDICATION
     Dosage: 50 MG, DAILY
     Route: 048
     Dates: start: 20140916
  3. ATIVAN [Concomitant]
     Active Substance: LORAZEPAM
     Indication: PRODUCT USED FOR UNKNOWN INDICATION
     Dosage: .5 MG, TID
     Route: 048
     Dates: start: 20140916
  4. AVEED [Suspect]
     Active Substance: TESTOSTERONE UNDECANOATE
     Dosage: 750 MG, UNKNOWN
     Route: 065
     Dates: start: 20150929
  5. BYSTOLIC [Concomitant]
     Active Substance: NEBIVOLOL HYDROCHLORIDE
     Indication: PRODUCT USED FOR UNKNOWN INDICATION
     Dosage: 5 MG, DAILY
     Route: 048
     Dates: start: 20140916
  6. AVEED [Suspect]
     Active Substance: TESTOSTERONE UNDECANOATE
     Dosage: 750 MG, UNKNOWN
     Route: 065
     Dates: start: 20150416
  7. AVEED [Suspect]
     Active Substance: TESTOSTERONE UNDECANOATE
     Indication: ANDROGEN REPLACEMENT THERAPY
     Dosage: 750 MG, UNKNOWN
     Route: 030
     Dates: start: 20150318
  8. TESTOPEL [Suspect]
     Active Substance: TESTOSTERONE
     Indication: ANDROGEN REPLACEMENT THERAPY
     Dosage: 10 PELLETS PLACED
     Route: 065
     Dates: start: 20140520
  9. TESTOPEL [Suspect]
     Active Substance: TESTOSTERONE
     Dosage: 10 PELLETS PLACED
     Route: 065
     Dates: start: 20140916
  10. FORTESTA [Suspect]
     Active Substance: TESTOSTERONE
     Indication: ANDROGEN REPLACEMENT THERAPY
     Dosage: 10 MG/0.5 G/ACTUATION, EVERY DAY IN THE MORNING TO THE FRONT AND INSIDE AREA OF THE THIGS
     Route: 061
     Dates: start: 20131030
  11. AVEED [Suspect]
     Active Substance: TESTOSTERONE UNDECANOATE
     Dosage: 750 MG, UNKNOWN
     Route: 065
     Dates: start: 20160302
  12. CRESTOR [Concomitant]
     Active Substance: ROSUVASTATIN CALCIUM
     Indication: PRODUCT USED FOR UNKNOWN INDICATION
     Dosage: 20 MG, DAILY
     Route: 048

REACTIONS (2)
  - Myocardial infarction [Unknown]
  - Prescribed overdose [Unknown]

NARRATIVE: CASE EVENT DATE: 20140520
